FAERS Safety Report 7846968-2 (Version None)
Quarter: 2011Q4

REPORT INFORMATION
  Report Type: 
  Country: None (occurrence: None)
  Receive Date: 20111025
  Receipt Date: 20111013
  Transmission Date: 20120403
  Serious: Yes (Hospitalization)
  Sender: FDA-Public Use
  Company Number: JP-ASTRAZENECA-2011SE53222

PATIENT
  Age: 67 Year
  Sex: Male

DRUGS (35)
  1. MEROPENEM [Suspect]
     Indication: INFECTION
     Route: 042
     Dates: start: 20110814, end: 20110817
  2. AMIODARONE HCL [Suspect]
     Indication: PROPHYLAXIS
     Route: 065
     Dates: start: 20110805, end: 20110814
  3. RABEPRAZOLE SODIUM [Concomitant]
     Indication: PROPHYLAXIS AGAINST GASTROINTESTINAL ULCER
     Route: 048
     Dates: start: 20110805, end: 20110805
  4. RISPERDAL [Concomitant]
     Indication: DELIRIUM
     Route: 048
     Dates: start: 20110815, end: 20110819
  5. ALLOID G [Concomitant]
  6. YOKU-KAN-SAN [Concomitant]
     Indication: DELIRIUM
     Route: 048
     Dates: start: 20110811
  7. FUROSEMIDE [Concomitant]
     Indication: POLYURIA
     Dates: start: 20110805, end: 20110820
  8. PICILLIBACTA [Suspect]
     Indication: PNEUMONIA
     Route: 042
     Dates: start: 20110806, end: 20110809
  9. LIPITOR [Concomitant]
     Indication: DYSLIPIDAEMIA
     Route: 048
     Dates: start: 20110805, end: 20110805
  10. YOKU-KAN-SAN [Concomitant]
     Indication: PROPHYLAXIS
     Route: 048
     Dates: start: 20110811
  11. HANP [Concomitant]
     Indication: POLYURIA
     Dates: start: 20110809, end: 20110813
  12. FENTANYL-100 [Concomitant]
     Indication: ANALGESIC THERAPY
     Dates: start: 20110805, end: 20110808
  13. CALCIUM CARBONATE [Concomitant]
     Indication: MINERAL SUPPLEMENTATION
     Route: 042
     Dates: start: 20110806, end: 20110806
  14. VERAPAMIL HCL [Concomitant]
     Indication: TACHYCARDIA
     Route: 042
     Dates: start: 20110806, end: 20110806
  15. NOVORAPID [Concomitant]
     Indication: HYPERGLYCAEMIA
     Route: 042
     Dates: start: 20110807, end: 20110807
  16. NOREPINEPHRINE BITARTRATE [Concomitant]
     Indication: BLOOD PRESSURE MANAGEMENT
     Dates: start: 20110805, end: 20110805
  17. PROPOFOL [Concomitant]
     Indication: SEDATION
     Dates: start: 20110805, end: 20110815
  18. DOBUPUM [Concomitant]
     Indication: BLOOD PRESSURE MANAGEMENT
     Dates: start: 20110806, end: 20110807
  19. ALLOID [Concomitant]
     Indication: PROPHYLAXIS AGAINST GASTROINTESTINAL ULCER
     Route: 048
     Dates: start: 20110811
  20. BUMINATE [Concomitant]
     Indication: POLYURIA
     Route: 042
     Dates: start: 20110806, end: 20110806
  21. POTASSIUM CHLORIDE [Concomitant]
     Dates: start: 20110813, end: 20110814
  22. OMEPRAZOLE [Concomitant]
     Indication: GASTRIC ULCER HAEMORRHAGE
     Route: 048
     Dates: start: 20110805, end: 20110816
  23. RISPERDAL [Concomitant]
     Indication: PROPHYLAXIS
     Route: 048
     Dates: start: 20110815, end: 20110819
  24. ADEHL [Concomitant]
     Indication: BLOOD PRESSURE MANAGEMENT
     Dates: start: 20110805, end: 20110805
  25. POTASSIUM CHLORIDE [Concomitant]
     Indication: ELECTROLYTE SUBSTITUTION THERAPY
     Dates: start: 20110806, end: 20110807
  26. HEPARIN SODIUM [Concomitant]
     Indication: STENT PLACEMENT
     Dates: start: 20110806, end: 20110807
  27. ASPIRIN [Concomitant]
     Indication: STENT PLACEMENT
     Route: 048
     Dates: start: 20110805, end: 20110805
  28. PRECEDEX [Concomitant]
     Indication: SEDATION
     Dates: start: 20110809, end: 20110809
  29. AMIODARONE HCL [Suspect]
     Indication: VENTRICULAR TACHYCARDIA
     Route: 065
     Dates: start: 20110805, end: 20110814
  30. LASOPRAN OD [Concomitant]
     Route: 048
  31. ONOACT [Concomitant]
     Indication: BLOOD PRESSURE MANAGEMENT
     Dates: start: 20110806, end: 20110810
  32. PITRESSIN [Concomitant]
     Indication: BLOOD PRESSURE MANAGEMENT
     Dates: start: 20110805, end: 20110806
  33. KAYTWO N [Concomitant]
     Indication: COAGULOPATHY
     Dates: start: 20110808, end: 20110814
  34. NOVORAPID [Concomitant]
     Route: 042
     Dates: start: 20110809, end: 20110809
  35. HUMULIN R [Concomitant]
     Indication: HYPERGLYCAEMIA
     Dates: start: 20110808, end: 20110811

REACTIONS (1)
  - INTERSTITIAL LUNG DISEASE [None]
